FAERS Safety Report 8223476-0 (Version None)
Quarter: 2012Q1

REPORT INFORMATION
  Report Type: 
  Country: None (occurrence: None)
  Receive Date: 20120307
  Receipt Date: 20101215
  Transmission Date: 20120608
  Serious: Yes (Hospitalization, Other)
  Sender: FDA-Public Use
  Company Number: PHHY2010US80068

PATIENT
  Age: 52 Year
  Sex: Male
  Weight: 43 kg

DRUGS (7)
  1. AFINITOR [Suspect]
     Dosage: 10 MG, QD, ORAL
     Route: 048
     Dates: start: 20100701, end: 20100901
  2. MS CONTIN [Concomitant]
  3. LEUCOVORIN (FOLINIC ACID) [Concomitant]
  4. LIPITOR [Concomitant]
  5. COUMADIN [Concomitant]
  6. MS CONTIN [Concomitant]
  7. FLUOROURACIL [Concomitant]

REACTIONS (27)
  - LEUKOPENIA [None]
  - INFECTION [None]
  - DRY MOUTH [None]
  - DIZZINESS [None]
  - OEDEMA PERIPHERAL [None]
  - MUSCULAR WEAKNESS [None]
  - FAILURE TO THRIVE [None]
  - HYPOPHAGIA [None]
  - DYSPNOEA [None]
  - CHEST PAIN [None]
  - FATIGUE [None]
  - PLEURAL EFFUSION [None]
  - ANAEMIA [None]
  - WEIGHT DECREASED [None]
  - HEADACHE [None]
  - HAEMOGLOBIN DECREASED [None]
  - INFLAMMATION [None]
  - SINUS TACHYCARDIA [None]
  - ORAL PAIN [None]
  - PAIN IN EXTREMITY [None]
  - ASTHENIA [None]
  - THORACIC CAVITY DRAINAGE [None]
  - COUGH [None]
  - TACHYCARDIA [None]
  - DIARRHOEA [None]
  - MALNUTRITION [None]
  - PRURITUS GENERALISED [None]
